FAERS Safety Report 23499852 (Version 2)
Quarter: 2024Q1

REPORT INFORMATION
  Report Type: Report from Study
  Country: US (occurrence: US)
  Receive Date: 20240208
  Receipt Date: 20240307
  Transmission Date: 20240410
  Serious: Yes (Hospitalization)
  Sender: FDA-Public Use
  Company Number: US-JAZZ PHARMACEUTICALS-2024-US-002271

PATIENT
  Sex: Male

DRUGS (2)
  1. EPIDIOLEX [Suspect]
     Active Substance: CANNABIDIOL
     Indication: Epilepsy
     Dosage: GIVE 0.2 ML BY MOUTH TWICE DAILY FOR 14 DAYS, THEN GIVE 0.4 ML TWICE DAILY FOR 16 DAYS
     Route: 048
     Dates: start: 202401
  2. EPIDIOLEX [Suspect]
     Active Substance: CANNABIDIOL
     Indication: Seizure
     Dosage: 0.4 MILLILITER, BID
     Route: 048
     Dates: start: 202401

REACTIONS (1)
  - Hospitalisation [Unknown]
